FAERS Safety Report 5218335-1 (Version None)
Quarter: 2007Q1

REPORT INFORMATION
  Report Type: 
  Country: None (occurrence: None)
  Receive Date: 20070123
  Receipt Date: 20070123
  Transmission Date: 20070707
  Serious: Yes (Hospitalization)
  Sender: FDA-Public Use
  Company Number: None

PATIENT
  Age: 22 Year
  Sex: Female

DRUGS (2)
  1. LINEZOLID [Suspect]
     Indication: ENTEROCOCCAL BACTERAEMIA
     Dosage: 600 MG IV EVERY 12 HOUR
     Route: 042
     Dates: start: 20061203, end: 20061206
  2. PIPERACILLIN AND TAZOBACTAM [Suspect]
     Dosage: 4.5GM EVERY 6 HOURS
     Dates: start: 20061130, end: 20061208

REACTIONS (2)
  - ALANINE AMINOTRANSFERASE INCREASED [None]
  - ASPARTATE AMINOTRANSFERASE INCREASED [None]
